FAERS Safety Report 4587200-5 (Version None)
Quarter: 2005Q1

REPORT INFORMATION
  Report Type: 
  Country: None (occurrence: None)
  Receive Date: 20050215
  Receipt Date: 20050215
  Transmission Date: 20050727
  Serious: Yes (Hospitalization)
  Sender: FDA-Public Use
  Company Number: 2005PL000006

PATIENT
  Age: 19 Year
  Sex: Male
  Weight: 87 kg

DRUGS (3)
  1. IMURAN [Suspect]
     Indication: CROHN'S DISEASE
     Dosage: 75 MG; DAILY; ORAL
     Route: 048
     Dates: end: 20040101
  2. INFLIXIMAB [Suspect]
     Indication: CROHN'S DISEASE
     Dosage: 5 MG/KG; INTRAVENOUS
     Route: 042
  3. PREDNISONE [Concomitant]

REACTIONS (10)
  - ALANINE AMINOTRANSFERASE INCREASED [None]
  - ASPARTATE AMINOTRANSFERASE INCREASED [None]
  - BLOOD LACTATE DEHYDROGENASE INCREASED [None]
  - CANDIDIASIS [None]
  - CYTOMEGALOVIRUS ANTIBODY POSITIVE [None]
  - DRUG INTERACTION [None]
  - LEUKOPENIA [None]
  - OXYGEN SATURATION DECREASED [None]
  - PNEUMOCYSTIS JIROVECI PNEUMONIA [None]
  - THERAPY NON-RESPONDER [None]
